FAERS Safety Report 4690424-X (Version None)
Quarter: 2005Q2

REPORT INFORMATION
  Report Type: 
  Country: None (occurrence: None)
  Receive Date: 20050615
  Receipt Date: 20050511
  Transmission Date: 20051028
  Serious: Yes (Other)
  Sender: FDA-Public Use
  Company Number: US-JNJFOC-20050503656

PATIENT
  Age: 35 Year
  Sex: Female
  Weight: 77.11 kg

DRUGS (6)
  1. DURAGESIC-100 [Suspect]
  2. GABITRIL [Concomitant]
     Route: 049
  3. KEPPRA [Concomitant]
     Dosage: 500 MG AT NIGHT
     Route: 049
  4. LEVOXYL [Concomitant]
     Dosage: 200 MG
     Route: 049
  5. SOMA [Concomitant]
     Dosage: 350 MG AS NEEDED
  6. LIDOCAINE [Concomitant]

REACTIONS (3)
  - CAESAREAN SECTION [None]
  - DRUG EXPOSURE DURING PREGNANCY [None]
  - FOETAL MALPOSITION [None]
